FAERS Safety Report 10431074 (Version 2)
Quarter: 2014Q4

REPORT INFORMATION
  Report Type: Spontaneous
  Country: RU (occurrence: RU)
  Receive Date: 20140904
  Receipt Date: 20141104
  Transmission Date: 20150528
  Serious: Yes (Other)
  Sender: FDA-Public Use
  Company Number: RU-BAYER-2014-129218

PATIENT
  Age: 47 Year
  Sex: Female

DRUGS (5)
  1. SORAFENIB (RAF KINASE INHIBITOR) [Suspect]
     Active Substance: SORAFENIB
     Indication: HEPATOCELLULAR CARCINOMA
     Dosage: UNREGULARLY TAKEN
     Dates: start: 201008, end: 201105
  2. ANAPRILIN [Concomitant]
     Active Substance: PROPRANOLOL HYDROCHLORIDE
  3. HEPA [Concomitant]
  4. ORNITHINE [Concomitant]
     Active Substance: ORNITHINE
  5. URSOFALK [Concomitant]
     Active Substance: URSODIOL

REACTIONS (2)
  - Drug administration error [None]
  - Neurotoxicity [None]
